FAERS Safety Report 12071194 (Version 1)
Quarter: 2016Q1

REPORT INFORMATION
  Report Type: Spontaneous
  Country: US (occurrence: US)
  Receive Date: 20160211
  Receipt Date: 20160211
  Transmission Date: 20160526
  Serious: No
  Sender: FDA-Public Use
  Company Number: US-GILEAD-2016-0197437

PATIENT
  Age: 75 Year
  Sex: Male
  Weight: 118.82 kg

DRUGS (7)
  1. PREDNISONE. [Suspect]
     Active Substance: PREDNISONE
     Indication: GOUT
     Dosage: 4 MG, PRN
     Route: 065
  2. NORVASC [Concomitant]
     Active Substance: AMLODIPINE BESYLATE
     Indication: BLOOD PRESSURE ABNORMAL
     Dosage: 10 MG, QD
  3. LOPRESSOR [Concomitant]
     Active Substance: METOPROLOL TARTRATE
     Indication: BLOOD PRESSURE ABNORMAL
     Dosage: 50 MG, QD
  4. SUTENT [Interacting]
     Active Substance: SUNITINIB MALATE
     Indication: RENAL CELL CARCINOMA
     Dosage: 50 MG, UNK
     Route: 048
     Dates: start: 20150730
  5. SUTENT [Interacting]
     Active Substance: SUNITINIB MALATE
     Dosage: 37.5 MG, UNK
     Route: 048
  6. ALLOPURINOL. [Suspect]
     Active Substance: ALLOPURINOL
     Indication: GOUT
     Dosage: 100 MG, QD
     Route: 065
  7. RANEXA [Interacting]
     Active Substance: RANOLAZINE
     Indication: ARRHYTHMIA
     Dosage: UNK
     Route: 065

REACTIONS (23)
  - Cardiac disorder [Recovered/Resolved]
  - Oral mucosal exfoliation [Unknown]
  - Drug interaction [Unknown]
  - Gingival pain [Not Recovered/Not Resolved]
  - Weight decreased [Not Recovered/Not Resolved]
  - Pain [Unknown]
  - Weight increased [Unknown]
  - Sinus disorder [Unknown]
  - Ageusia [Unknown]
  - Hyperchlorhydria [Recovered/Resolved]
  - Decreased appetite [Not Recovered/Not Resolved]
  - Dyspepsia [Unknown]
  - Dysgeusia [Unknown]
  - Platelet count decreased [Unknown]
  - Asthenia [Not Recovered/Not Resolved]
  - Constipation [Recovered/Resolved]
  - Dizziness [Not Recovered/Not Resolved]
  - Diarrhoea [Recovered/Resolved]
  - Gout [Unknown]
  - Abdominal pain upper [Unknown]
  - Hyperhidrosis [Not Recovered/Not Resolved]
  - Fatigue [Unknown]
  - Mental fatigue [Not Recovered/Not Resolved]
